FAERS Safety Report 4979922-9 (Version None)
Quarter: 2006Q2

REPORT INFORMATION
  Report Type: 
  Country: None (occurrence: None)
  Receive Date: 20060421
  Receipt Date: 20050420
  Transmission Date: 20061013
  Serious: Yes (Hospitalization)
  Sender: FDA-Public Use
  Company Number: US-MERCK-0504USA03947

PATIENT
  Age: 58 Year
  Sex: Male
  Weight: 100 kg

DRUGS (3)
  1. VIOXX [Suspect]
     Indication: ARTHRITIS
     Route: 048
     Dates: start: 19990101, end: 20010501
  2. VIOXX [Suspect]
     Route: 048
     Dates: start: 19990101, end: 20010501
  3. VIOXX [Suspect]
     Route: 048
     Dates: start: 19990101, end: 20010501

REACTIONS (20)
  - ACUTE MYOCARDIAL INFARCTION [None]
  - BACK PAIN [None]
  - CARDIAC FAILURE CONGESTIVE [None]
  - CHEST PAIN [None]
  - COLITIS [None]
  - COLONIC POLYP [None]
  - CORONARY ARTERY OCCLUSION [None]
  - DIARRHOEA [None]
  - DIVERTICULUM [None]
  - DYSPNOEA [None]
  - FALL [None]
  - GASTROINTESTINAL HAEMORRHAGE [None]
  - HEADACHE [None]
  - HEAT STROKE [None]
  - HYPOTENSION [None]
  - INTRACRANIAL ANEURYSM [None]
  - NEUROPATHY [None]
  - PAIN IN EXTREMITY [None]
  - RENAL FAILURE CHRONIC [None]
  - SYNOVIAL CYST [None]
